FAERS Safety Report 4354014-0 (Version None)
Quarter: 2004Q2

REPORT INFORMATION
  Report Type: 
  Country: None (occurrence: None)
  Receive Date: 20040503
  Receipt Date: 20040419
  Transmission Date: 20050107
  Serious: Yes (Hospitalization, Disabling)
  Sender: FDA-Public Use
  Company Number: 2004GB00939

PATIENT
  Age: 22 Year
  Sex: Female
  Weight: 62 kg

DRUGS (12)
  1. PROPOFOL [Suspect]
     Indication: INDUCTION OF ANAESTHESIA
     Dosage: 150 MG IV
     Route: 042
     Dates: start: 20040405
  2. CITALOPRAM [Suspect]
     Indication: DEPRESSION
  3. ONDANSETRON [Suspect]
     Dosage: 4 MG   IV
     Route: 042
     Dates: start: 20040405
  4. FENTANYL [Suspect]
     Indication: ANALGESIC EFFECT
     Dosage: 100 UG   IV
     Route: 042
     Dates: start: 20040405
  5. DEXAMETHASONE [Suspect]
     Indication: OEDEMA
     Dosage: 10 MG   IV
     Route: 042
     Dates: start: 20040405
  6. OXYCODONE [Suspect]
     Indication: ANALGESIC EFFECT
     Dosage: 5 MG DAILY
     Dates: start: 20040405
  7. KETOROLAC [Concomitant]
  8. ATRACURIUM BESYLATE [Concomitant]
  9. ISOFLURANE [Concomitant]
  10. NITROUS OXIDE [Concomitant]
  11. CO-PROXAMOL [Concomitant]
  12. ALBUTEROL SULFATE [Concomitant]

REACTIONS (3)
  - DELAYED RECOVERY FROM ANAESTHESIA [None]
  - DEPRESSED LEVEL OF CONSCIOUSNESS [None]
  - DRUG INTERACTION [None]
